FAERS Safety Report 7324848-9 (Version None)
Quarter: 2011Q1

REPORT INFORMATION
  Report Type: 
  Country: None (occurrence: None)
  Receive Date: 20110301
  Receipt Date: 20110223
  Transmission Date: 20110831
  Serious: Yes (Hospitalization)
  Sender: FDA-Public Use
  Company Number: US-GILEAD-2011-0036897

PATIENT
  Age: 65 Year
  Sex: Male

DRUGS (5)
  1. FLOLAN [Concomitant]
  2. VENTAVIS [Concomitant]
  3. REMODULIN [Concomitant]
  4. TRACLEER [Concomitant]
  5. LETAIRIS [Suspect]
     Indication: PRODUCT USED FOR UNKNOWN INDICATION
     Route: 048
     Dates: start: 20080124

REACTIONS (2)
  - DYSPNOEA [None]
  - SYNCOPE [None]
